FAERS Safety Report 15930810 (Version 1)
Quarter: 2019Q1

REPORT INFORMATION
  Report Type: Spontaneous
  Country: US (occurrence: US)
  Receive Date: 20190207
  Receipt Date: 20190207
  Transmission Date: 20190417
  Serious: Yes (Other)
  Sender: FDA-Public Use
  Company Number: US-JNJFOC-20190139341

PATIENT
  Age: 58 Year
  Sex: Female
  Weight: 83.92 kg

DRUGS (2)
  1. TYLENOL SINUS PLUS HEADACHE DAY [Suspect]
     Active Substance: ACETAMINOPHEN\PHENYLEPHRINE HYDROCHLORIDE
     Indication: HEADACHE
     Dosage: 2 CAPS EVERY FOUR HOURS- ONE DAY
     Route: 048
     Dates: start: 20190124, end: 201901
  2. TYLENOL SINUS PLUS HEADACHE DAY [Suspect]
     Active Substance: ACETAMINOPHEN\PHENYLEPHRINE HYDROCHLORIDE
     Indication: SINUS PAIN
     Dosage: 2 CAPS EVERY FOUR HOURS- ONE DAY
     Route: 048
     Dates: start: 20190124, end: 201901

REACTIONS (4)
  - Drug ineffective [Unknown]
  - Blood pressure increased [Recovering/Resolving]
  - Headache [Recovering/Resolving]
  - Sinus pain [Recovering/Resolving]

NARRATIVE: CASE EVENT DATE: 201901
